FAERS Safety Report 9472219 (Version 1)
Quarter: 2013Q3

REPORT INFORMATION
  Report Type: Spontaneous
  Country: US (occurrence: None)
  Receive Date: 20130821
  Receipt Date: 20130821
  Transmission Date: 20140515
  Serious: No
  Sender: FDA-Public Use
  Company Number: None

PATIENT
  Age: 53 Year
  Sex: Female
  Weight: 66.04 kg

DRUGS (10)
  1. APIDRA SOLOSTAR [Suspect]
     Dosage: 8 UNITS
     Route: 058
     Dates: start: 20130725
  2. SYNTHROID [Concomitant]
  3. SIMVASTATIN [Concomitant]
  4. PANTOPRAZOLE [Concomitant]
  5. NEURONTIN [Concomitant]
  6. LOSARTAN [Concomitant]
  7. FISH OIL [Concomitant]
  8. VITAMIN D [Concomitant]
  9. LEVEMIR [Concomitant]
  10. LAMOTRIGINE [Concomitant]

REACTIONS (1)
  - Feeling hot [None]
